FAERS Safety Report 6351008-0 (Version None)
Quarter: 2009Q3

REPORT INFORMATION
  Report Type: 
  Country: None (occurrence: None)
  Receive Date: 20090912
  Receipt Date: 20090622
  Transmission Date: 20100115
  Serious: No
  Sender: FDA-Public Use
  Company Number: US-ABBOTT-07P-163-0374276-00

PATIENT
  Sex: Female

DRUGS (4)
  1. HUMIRA [Suspect]
     Indication: RHEUMATOID ARTHRITIS
     Route: 058
     Dates: start: 20070704
  2. HUMIRA [Suspect]
     Indication: CROHN'S DISEASE
     Dosage: PRE-FILLED SYRINGE
     Route: 058
     Dates: start: 20051001, end: 20070704
  3. ALLERGY SHOTS [Concomitant]
     Indication: HYPERSENSITIVITY
  4. PREDNISONE [Concomitant]
     Indication: DRUG USE FOR UNKNOWN INDICATION

REACTIONS (1)
  - INCORRECT DOSE ADMINISTERED [None]
